FAERS Safety Report 6859884-X (Version None)
Quarter: 2010Q3

REPORT INFORMATION
  Report Type: 
  Country: None (occurrence: None)
  Receive Date: 20100720
  Receipt Date: 20100616
  Transmission Date: 20110219
  Serious: No
  Sender: FDA-Public Use
  Company Number: US-BAYER-201025662NA

PATIENT
  Sex: Female

DRUGS (1)
  1. MIRENA [Suspect]
     Indication: PRODUCT USED FOR UNKNOWN INDICATION
     Dosage: FREQUENCY CONTINUOUS
     Route: 015
     Dates: start: 20090601, end: 20100616

REACTIONS (8)
  - ABDOMINAL PAIN [None]
  - ACNE [None]
  - ALOPECIA [None]
  - ANXIETY [None]
  - COITAL BLEEDING [None]
  - HEADACHE [None]
  - MOOD SWINGS [None]
  - VAGINAL HAEMORRHAGE [None]
